FAERS Safety Report 8761062 (Version 1)
Quarter: 2012Q4

REPORT INFORMATION
  Report Type: 
  Country: US (occurrence: US)
  Receive Date: 20120830
  Receipt Date: 20120830
  Transmission Date: 20130627
  Serious: Yes (Hospitalization)
  Sender: FDA-Public Use
  Company Number: US-FRI-1000027122

PATIENT
  Age: 90 None
  Sex: Male
  Weight: 73.5 kg

DRUGS (6)
  1. DALIRESP [Suspect]
     Indication: CHRONIC OBSTRUCTIVE PULMONARY DISEASE
     Dosage: 500 mcg
     Route: 048
     Dates: start: 20120209, end: 20120313
  2. DIURIL [Concomitant]
     Dates: end: 201203
  3. LISINOPRIL [Concomitant]
     Indication: HYPERTENSION
     Dosage: 20 mg
     Dates: end: 201203
  4. LISINOPRIL [Concomitant]
     Dosage: 20 mg
     Dates: start: 2012
  5. SPIRIVA [Concomitant]
  6. IMIPRAMINE [Concomitant]

REACTIONS (6)
  - Blood pressure fluctuation [Recovered/Resolved]
  - Syncope [Recovered/Resolved]
  - Hypotension [Recovered/Resolved]
  - Head injury [Recovered/Resolved]
  - Malaise [Recovered/Resolved]
  - Dizziness [Recovered/Resolved]
